FAERS Safety Report 19159231 (Version 5)
Quarter: 2021Q4

REPORT INFORMATION
  Report Type: Report from Study
  Country: US (occurrence: US)
  Receive Date: 20210420
  Receipt Date: 20211207
  Transmission Date: 20220303
  Serious: No
  Sender: FDA-Public Use
  Company Number: NVSC2021US089064

PATIENT
  Sex: Male

DRUGS (3)
  1. ENTRESTO [Suspect]
     Active Substance: SACUBITRIL\VALSARTAN
     Indication: Cardiac failure
     Dosage: 100 MG, BID (49.51MG)
     Route: 048
     Dates: start: 2019
  2. CARVEDILOL [Suspect]
     Active Substance: CARVEDILOL
     Indication: Cardiac failure
     Dosage: 6.25 MG, QID
     Route: 048
     Dates: start: 2019
  3. CARVEDILOL [Suspect]
     Active Substance: CARVEDILOL
     Dosage: 3.125 MG, BID
     Route: 048

REACTIONS (4)
  - Dysphagia [Unknown]
  - Weight fluctuation [Unknown]
  - Peripheral artery thrombosis [Unknown]
  - Wrong technique in product usage process [Unknown]

NARRATIVE: CASE EVENT DATE: 20190101
